FAERS Safety Report 24867202 (Version 1)
Quarter: 2025Q1

REPORT INFORMATION
  Report Type: Spontaneous
  Country: JP (occurrence: JP)
  Receive Date: 20250121
  Receipt Date: 20250121
  Transmission Date: 20250408
  Serious: Yes (Other)
  Sender: AMGEN
  Company Number: JP-DSJP-DS-2024-100587-

PATIENT

DRUGS (1)
  1. DENOSUMAB [Suspect]
     Active Substance: DENOSUMAB
     Indication: Product used for unknown indication
     Route: 058

REACTIONS (3)
  - Device safety feature issue [Unknown]
  - Infection [Unknown]
  - Injury associated with device [Unknown]

NARRATIVE: CASE EVENT DATE: 20240919
